FAERS Safety Report 8775307 (Version 2)
Quarter: 2013Q1

REPORT INFORMATION
  Report Type: Spontaneous
  Country: US (occurrence: US)
  Receive Date: 20120909
  Receipt Date: 20130110
  Transmission Date: 20140127
  Serious: No
  Sender: FDA-Public Use
  Company Number: US-009507513-1208USA009154

PATIENT
  Sex: Female

DRUGS (2)
  1. FOLLISTIM AQ CARTRIDGE [Suspect]
     Indication: ASSISTED FERTILISATION
     Dosage: 10 DOSES OF 37.5 AND 4 DOSES OF 52.5
     Route: 058
     Dates: start: 201109
  2. PUREGON PEN [Suspect]
     Indication: ASSISTED FERTILISATION
     Dosage: UNK
     Dates: start: 201109

REACTIONS (2)
  - Cyst [Unknown]
  - Incorrect dose administered by device [Unknown]
